FAERS Safety Report 8933840 (Version 3)
Quarter: 2014Q1

REPORT INFORMATION
  Report Type: Report from Study
  Country: JP (occurrence: JP)
  Receive Date: 20121129
  Receipt Date: 20140210
  Transmission Date: 20141002
  Serious: Yes (Other)
  Sender: FDA-Public Use
  Company Number: JP-VERTEX PHARMACEUTICAL INC.-AE-2012-005979

PATIENT
  Age: 60 Year
  Sex: Male

DRUGS (18)
  1. VX-950 (TELAPREVIR) [Suspect]
     Indication: CHRONIC HEPATITIS C
     Dosage: 2250 MG, QD
     Route: 048
     Dates: start: 20120111, end: 20120329
  2. VX-950 (TELAPREVIR) [Suspect]
     Dosage: 1500 MG, QD
     Route: 048
     Dates: start: 20120330, end: 20120406
  3. REBETOL [Suspect]
     Indication: CHRONIC HEPATITIS C
     Dosage: 800 MG, QD
     Route: 048
     Dates: start: 20120111, end: 20120223
  4. REBETOL [Suspect]
     Dosage: 600 MG, QD
     Route: 048
     Dates: start: 20120224, end: 20120301
  5. REBETOL [Suspect]
     Dosage: 400 MG, QD
     Route: 048
     Dates: start: 20120302, end: 20120413
  6. REBETOL [Suspect]
     Dosage: 200 MG, QD
     Route: 048
     Dates: start: 20120417, end: 20120430
  7. REBETOL [Suspect]
     Dosage: 400 MG, QD
     Route: 048
     Dates: end: 20120517
  8. REBETOL [Suspect]
     Dosage: 600 MG, QD
     Route: 048
     Dates: start: 20120518, end: 20120531
  9. PEGINTRON [Suspect]
     Indication: CHRONIC HEPATITIS C
     Dosage: 1.56 ?G/KG, WEEK
     Route: 058
     Dates: start: 20120111, end: 20120202
  10. PEGINTRON [Suspect]
     Dosage: 1.3 ?G/KG, WEEK
     Route: 058
     Dates: start: 20120203, end: 20120525
  11. URSO [Concomitant]
     Dosage: 50 MG, QD
     Route: 048
  12. LORFENAMIN [Concomitant]
     Dosage: UNK, PRN
     Route: 048
     Dates: start: 20120111, end: 20120124
  13. MUCOSTA [Concomitant]
     Dosage: 300 MG, QD
     Route: 048
     Dates: start: 20120118
  14. LYRICA [Concomitant]
     Dosage: 75 MG, QD
     Route: 048
     Dates: start: 20120121, end: 20120124
  15. EPADEL [Concomitant]
     Dosage: 2 DF, QD
     Route: 048
     Dates: start: 20120217
  16. LENDORMIN [Concomitant]
     Dosage: 0.25 MG, QD
     Route: 048
     Dates: start: 20120217
  17. TSUMURA HANGE-SHASHINTO EXTRACT GRANUELS/OTHER THERAPEUTIC PRODUCTS [Concomitant]
     Dosage: 7.5 G, QD
     Route: 048
     Dates: start: 20120217, end: 20120614
  18. CARTIN [Concomitant]
     Dosage: 1800 MG, QD
     Route: 048
     Dates: start: 20120518

REACTIONS (2)
  - Interstitial lung disease [Recovering/Resolving]
  - Haemoglobin decreased [Recovering/Resolving]
